FAERS Safety Report 5862065-X (Version None)
Quarter: 2008Q3

REPORT INFORMATION
  Report Type: 
  Country: None (occurrence: None)
  Receive Date: 20080827
  Receipt Date: 20080827
  Transmission Date: 20090109
  Serious: Yes (Other)
  Sender: FDA-Public Use
  Company Number: None

PATIENT
  Sex: Female
  Weight: 79.3795 kg

DRUGS (3)
  1. BUPROPION HCL [Suspect]
     Indication: DEPRESSION
     Dosage: # 60 ONE BID PO
     Route: 048
     Dates: start: 20070502
  2. BUPROPION HCL [Suspect]
     Indication: DEPRESSION
     Dosage: # 60 ONE BID PO
     Route: 048
     Dates: start: 20070531
  3. BUPROPION HCL [Suspect]
     Indication: DEPRESSION
     Dosage: # 60 ONE BID PO
     Route: 048
     Dates: start: 20070622

REACTIONS (3)
  - ANXIETY [None]
  - MOOD SWINGS [None]
  - MUSCLE SPASMS [None]
